FAERS Safety Report 18891266 (Version 2)
Quarter: 2021Q2

REPORT INFORMATION
  Report Type: Spontaneous
  Country: JP (occurrence: JP)
  Receive Date: 20210215
  Receipt Date: 20210402
  Transmission Date: 20210717
  Serious: Yes (Hospitalization)
  Sender: FDA-Public Use
  Company Number: JP-ROCHE-2770064

PATIENT
  Age: 87 Year
  Sex: Female

DRUGS (5)
  1. OPALMON [Concomitant]
     Active Substance: LIMAPROST
     Dosage: DOSAGE IS UNCERTAIN
     Route: 065
  2. ASPARA?CA [Concomitant]
     Active Substance: CALCIUM ASPARTATE
     Dosage: DOSAGE IS UNCERTAIN
     Route: 065
  3. ELDECALCITOL [Concomitant]
     Active Substance: ELDECALCITOL
     Route: 065
  4. CELLCEPT [Suspect]
     Active Substance: MYCOPHENOLATE MOFETIL\MYCOPHENOLATE MOFETIL HYDROCHLORIDE
     Indication: PEMPHIGOID
     Dosage: IN THE MORNING/EVENING
     Route: 048
  5. VEMLIDY [Concomitant]
     Active Substance: TENOFOVIR ALAFENAMIDE FUMARATE
     Dosage: DOSAGE IS UNCERTAIN
     Route: 065

REACTIONS (2)
  - Compression fracture [Unknown]
  - Off label use [Unknown]

NARRATIVE: CASE EVENT DATE: 20210109
